FAERS Safety Report 4971005-7 (Version None)
Quarter: 2006Q2

REPORT INFORMATION
  Report Type: 
  Country: None (occurrence: None)
  Receive Date: 20060411
  Receipt Date: 20060411
  Transmission Date: 20061013
  Serious: No
  Sender: FDA-Public Use
  Company Number: None

PATIENT
  Age: 53 Year
  Sex: Female
  Weight: 73.4827 kg

DRUGS (1)
  1. SEPTOCAINE [Suspect]
     Indication: ANALGESIC EFFECT
     Dosage: X 1 DENTAL
     Route: 004

REACTIONS (8)
  - CONTRAINDICATION TO MEDICAL TREATMENT [None]
  - DELAYED RECOVERY FROM ANAESTHESIA [None]
  - DRUG ADMINISTRATION ERROR [None]
  - FACIAL PAIN [None]
  - FACIAL PALSY [None]
  - NEUROTOXICITY [None]
  - SIMILAR REACTION ON PREVIOUS EXPOSURE TO DRUG [None]
  - SWELLING FACE [None]
